FAERS Safety Report 8715116 (Version 3)
Quarter: 2013Q1

REPORT INFORMATION
  Report Type: Spontaneous
  Country: GB (occurrence: None)
  Receive Date: 20120724
  Receipt Date: 20121227
  Transmission Date: 20140127
  Serious: Yes (Hospitalization, Other)
  Sender: FDA-Public Use
  Company Number: AUR-APL-2012-03042

PATIENT
  Age: 69 Year
  Sex: Female
  Weight: 64 kg

DRUGS (14)
  1. MIRTAZAPINE (MIRTAZAPINE) [Suspect]
     Indication: PRODUCT USED FOR UNKNOWN INDICATION
     Dosage: 30 MG, DAILY
     Dates: start: 20120501
  2. PROPRANOLOL [Suspect]
     Indication: PRODUCT USED FOR UNKNOWN INDICATION
     Dosage: 60 MG (10 MG, 6 IN 1 D)
     Route: 048
     Dates: start: 20120501
  3. SEROXAT [Suspect]
     Indication: DEPRESSION
     Dosage: (20 MG, 2 IN 1 D)
     Route: 048
     Dates: start: 19970707, end: 200102
  4. LORAZEPAM (LORAZEPAM) [Suspect]
     Indication: PRODUCT USED FOR UNKNOWN INDICATION
     Dosage: (1 MG, 3 IN 1 D)
     Route: 048
     Dates: start: 20120329, end: 20120523
  5. METOCLOPRAMIDE [Suspect]
     Indication: PRODUCT USED FOR UNKNOWN INDICATION
     Dosage: 1/AS NECESSARY
     Route: 048
     Dates: start: 20080806, end: 201109
  6. METOCLOPRAMIDE [Suspect]
     Dosage: 1/AS NECESSARY
     Route: 048
     Dates: start: 20080806, end: 201109
  7. TETRABENAZINE [Suspect]
     Indication: PRODUCT USED FOR UNKNOWN INDICATION
     Dosage: 4.5 MG DAILY
     Route: 048
     Dates: start: 20111128, end: 20120320
  8. ACRIVASTINE [Concomitant]
  9. ATORVASTATIN (ATORVASTATIN) [Concomitant]
  10. BECONASE AQ [Concomitant]
  11. BENDROFLUMETHIAZIDE [Concomitant]
  12. FENOFIBRATE [Concomitant]
  13. LANSOPRAZOLE (LANSOPRAZOLE) [Concomitant]
  14. RAMIPRIL [Concomitant]

REACTIONS (9)
  - Akathisia [None]
  - Adverse drug reaction [None]
  - Hallucination [None]
  - Dyskinesia [None]
  - Fall [None]
  - Drug effect decreased [None]
  - General physical health deterioration [None]
  - Hypophagia [None]
  - Muscle contractions involuntary [None]
